APPROVED DRUG PRODUCT: TRAMADOL HYDROCHLORIDE AND ACETAMINOPHEN
Active Ingredient: ACETAMINOPHEN; TRAMADOL HYDROCHLORIDE
Strength: 325MG;37.5MG
Dosage Form/Route: TABLET;ORAL
Application: A076475 | Product #001
Applicant: CHARTWELL RX SCIENCES LLC
Approved: Apr 21, 2005 | RLD: No | RS: No | Type: DISCN